FAERS Safety Report 25141444 (Version 1)
Quarter: 2025Q1

REPORT INFORMATION
  Report Type: Report from Study
  Country: US (occurrence: US)
  Receive Date: 20250331
  Receipt Date: 20250331
  Transmission Date: 20250408
  Serious: Yes (Death, Congenital Anomaly)
  Sender: BAYER HEALTHCARE LLC
  Company Number: US-BAYER-2025A041407

PATIENT

DRUGS (1)
  1. ASPIRIN [Suspect]
     Active Substance: ASPIRIN

REACTIONS (3)
  - Congenital anomaly [Fatal]
  - Foetal exposure during pregnancy [None]
  - Premature baby [None]
